FAERS Safety Report 18068635 (Version 2)
Quarter: 2022Q2

REPORT INFORMATION
  Report Type: Spontaneous
  Country: CA (occurrence: CA)
  Receive Date: 20200724
  Receipt Date: 20220606
  Transmission Date: 20220720
  Serious: Yes (Death, Life-Threatening, Hospitalization, Other)
  Sender: FDA-Public Use
  Company Number: CA-BAUSCH-BL-2020-020859

PATIENT
  Age: 41 Year
  Sex: Male
  Weight: 83 kg

DRUGS (18)
  1. ACYCLOVIR [Suspect]
     Active Substance: ACYCLOVIR
     Indication: Antiviral treatment
     Route: 065
  2. ETHAMBUTOL [Suspect]
     Active Substance: ETHAMBUTOL HYDROCHLORIDE
     Indication: Product used for unknown indication
     Route: 065
  3. RIFAMPIN [Suspect]
     Active Substance: RIFAMPIN
     Indication: Product used for unknown indication
     Route: 065
  4. AMPHOTERICIN B [Suspect]
     Active Substance: AMPHOTERICIN B
     Indication: Antifungal treatment
     Route: 065
  5. ETANERCEPT [Suspect]
     Active Substance: ETANERCEPT
     Indication: Psoriasis
     Route: 058
  6. ISONIAZID [Suspect]
     Active Substance: ISONIAZID
     Indication: Product used for unknown indication
     Route: 065
  7. PYRAZINAMIDE [Suspect]
     Active Substance: PYRAZINAMIDE
     Indication: Product used for unknown indication
     Route: 065
  8. METHYLPREDNISOLONE [Suspect]
     Active Substance: METHYLPREDNISOLONE
     Indication: Product used for unknown indication
     Route: 065
  9. CELECOXIB [Suspect]
     Active Substance: CELECOXIB
     Indication: Arthritis
     Route: 065
  10. ERELZI [Suspect]
     Active Substance: ETANERCEPT-SZZS
     Indication: Psoriasis
     Route: 065
  11. ERELZI [Suspect]
     Active Substance: ETANERCEPT-SZZS
     Indication: Ankylosing spondylitis
     Route: 058
  12. ERELZI [Suspect]
     Active Substance: ETANERCEPT-SZZS
     Route: 058
  13. LEFLUNOMIDE [Suspect]
     Active Substance: LEFLUNOMIDE
     Indication: Product used for unknown indication
     Route: 065
  14. AZATHIOPRINE [Concomitant]
     Active Substance: AZATHIOPRINE
     Indication: Product used for unknown indication
  15. DICLOFENAC SODIUM\MISOPROSTOL [Concomitant]
     Active Substance: DICLOFENAC SODIUM\MISOPROSTOL
     Indication: Product used for unknown indication
  16. METHOTREXATE [Concomitant]
     Active Substance: METHOTREXATE
     Indication: Product used for unknown indication
  17. NABUMETONE [Concomitant]
     Active Substance: NABUMETONE
     Indication: Product used for unknown indication
  18. SULFASALAZINE [Concomitant]
     Active Substance: SULFASALAZINE
     Indication: Product used for unknown indication

REACTIONS (38)
  - Acute kidney injury [Fatal]
  - Ascites [Fatal]
  - Diaphragmatic injury [Fatal]
  - Encephalopathy [Fatal]
  - Generalised oedema [Fatal]
  - Granuloma [Fatal]
  - Granulomatous liver disease [Fatal]
  - Jaundice [Fatal]
  - Lymphadenopathy [Fatal]
  - Pleural effusion [Fatal]
  - Pneumonia [Fatal]
  - Pulmonary granuloma [Fatal]
  - Pulmonary oedema [Fatal]
  - Renal atrophy [Fatal]
  - Sepsis [Fatal]
  - Splenic infarction [Fatal]
  - Ankylosing spondylitis [Fatal]
  - Autoimmune haemolytic anaemia [Fatal]
  - Blood creatinine increased [Fatal]
  - Disseminated intravascular coagulation [Fatal]
  - Haemolytic anaemia [Fatal]
  - Hepatic enzyme increased [Fatal]
  - Implant site infection [Fatal]
  - Liver disorder [Fatal]
  - Liver function test abnormal [Fatal]
  - Marrow hyperplasia [Fatal]
  - Mycobacterial infection [Fatal]
  - Pancytopenia [Fatal]
  - Pulseless electrical activity [Fatal]
  - Sideroblastic anaemia [Fatal]
  - Splenic embolism [Fatal]
  - Splenomegaly [Fatal]
  - Thrombocytopenia [Fatal]
  - Upper gastrointestinal haemorrhage [Fatal]
  - Viral infection [Fatal]
  - Vitamin B1 decreased [Fatal]
  - Off label use [Fatal]
  - Drug ineffective [Fatal]
